FAERS Safety Report 23102308 (Version 3)
Quarter: 2024Q2

REPORT INFORMATION
  Report Type: Report from Study
  Country: US (occurrence: US)
  Receive Date: 20231025
  Receipt Date: 20240513
  Transmission Date: 20240716
  Serious: Yes (Hospitalization)
  Sender: FDA-Public Use
  Company Number: US-BoehringerIngelheim-2022-BI-190163

PATIENT
  Age: 77 Year
  Sex: Female

DRUGS (4)
  1. OFEV [Suspect]
     Active Substance: NINTEDANIB
     Indication: Idiopathic pulmonary fibrosis
     Route: 048
     Dates: start: 20230125
  2. OFEV [Suspect]
     Active Substance: NINTEDANIB
     Route: 048
     Dates: start: 20220820, end: 20220831
  3. OFEV [Suspect]
     Active Substance: NINTEDANIB
     Route: 048
     Dates: start: 20220901
  4. OFEV [Suspect]
     Active Substance: NINTEDANIB
     Route: 048

REACTIONS (40)
  - Road traffic accident [Unknown]
  - Acute stress disorder [Unknown]
  - Fall [Unknown]
  - Increased tendency to bruise [Recovering/Resolving]
  - Increased appetite [Unknown]
  - Haematochezia [Recovered/Resolved]
  - Mucous stools [Recovered/Resolved]
  - Headache [Not Recovered/Not Resolved]
  - Nausea [Not Recovered/Not Resolved]
  - Choking [Unknown]
  - Dyspnoea [Unknown]
  - Back pain [Unknown]
  - Limb discomfort [Unknown]
  - Pneumonia [Unknown]
  - Productive cough [Unknown]
  - Multiple allergies [Unknown]
  - Nasal congestion [Unknown]
  - Poor quality sleep [Unknown]
  - Abdominal discomfort [Unknown]
  - Asthenia [Unknown]
  - Neck injury [Recovered/Resolved]
  - Fatigue [Unknown]
  - Confusional state [Unknown]
  - Nervousness [Unknown]
  - Anxiety [Unknown]
  - Balance disorder [Unknown]
  - Arthralgia [Unknown]
  - Pain in extremity [Not Recovered/Not Resolved]
  - Poor peripheral circulation [Unknown]
  - Shoulder fracture [Unknown]
  - Dry mouth [Unknown]
  - Thirst [Unknown]
  - Abdominal pain upper [Not Recovered/Not Resolved]
  - Diarrhoea [Not Recovered/Not Resolved]
  - Sluggishness [Not Recovered/Not Resolved]
  - Back pain [Recovered/Resolved]
  - Sinusitis [Unknown]
  - Musculoskeletal pain [Recovered/Resolved]
  - Cough [Unknown]
  - Feeling abnormal [Unknown]

NARRATIVE: CASE EVENT DATE: 20220101
